FAERS Safety Report 23310701 (Version 1)
Quarter: 2023Q4

REPORT INFORMATION
  Report Type: Report from Study
  Country: CA (occurrence: CA)
  Receive Date: 20231218
  Receipt Date: 20231218
  Transmission Date: 20240110
  Serious: Yes (Other)
  Sender: FDA-Public Use
  Company Number: CA-ABBVIE-5541096

PATIENT
  Sex: Female

DRUGS (4)
  1. RINVOQ [Suspect]
     Active Substance: UPADACITINIB
     Indication: Rheumatoid arthritis
     Dosage: FORM STRENGTH: 15 MG
     Route: 048
     Dates: start: 20230223
  2. PROMETRIUM [Concomitant]
     Active Substance: PROGESTERONE
     Indication: Hot flush
     Route: 065
     Dates: start: 2012, end: 202312
  3. ESTRADIOL [Concomitant]
     Active Substance: ESTRADIOL
     Indication: Hot flush
     Route: 065
     Dates: start: 2012, end: 202312
  4. DULOXETINE [Concomitant]
     Active Substance: DULOXETINE
     Indication: Hot flush
     Dates: start: 20231204

REACTIONS (5)
  - Seizure [Unknown]
  - Arthralgia [Recovered/Resolved]
  - Pain in extremity [Recovered/Resolved]
  - Dizziness [Unknown]
  - Musculoskeletal disorder [Unknown]

NARRATIVE: CASE EVENT DATE: 20230101
